FAERS Safety Report 7443052-7 (Version None)
Quarter: 2011Q2

REPORT INFORMATION
  Report Type: 
  Country: None (occurrence: None)
  Receive Date: 20110428
  Receipt Date: 20100423
  Transmission Date: 20111010
  Serious: No
  Sender: FDA-Public Use
  Company Number: US-MYLANLABS-2010S1005839

PATIENT
  Age: 77 Year
  Sex: Female
  Weight: 81.65 kg

DRUGS (6)
  1. ANTIBIOTICS [Concomitant]
  2. IPRATROPIUM BROMIDE AND ALBUTEROL SULFATE [Suspect]
     Indication: PNEUMONIA
     Route: 055
     Dates: start: 20100311, end: 20100325
  3. DILTIAZEM [Concomitant]
     Indication: BLOOD PRESSURE
     Route: 048
     Dates: start: 20080101
  4. TRIAMTERENE AND HYDROCHLOROTHIAZIDE [Concomitant]
     Indication: DIURETIC THERAPY
     Route: 048
     Dates: start: 20080101
  5. IPRATROPIUM BROMIDE AND ALBUTEROL SULFATE [Suspect]
     Route: 055
     Dates: start: 20100311, end: 20100325
  6. LIPITOR [Concomitant]
     Indication: BLOOD CHOLESTEROL INCREASED
     Route: 048
     Dates: start: 20080101

REACTIONS (6)
  - HYPOAESTHESIA ORAL [None]
  - OROPHARYNGEAL PAIN [None]
  - HEADACHE [None]
  - ORAL PAIN [None]
  - GLOSSODYNIA [None]
  - HYPOAESTHESIA [None]
